FAERS Safety Report 4986982-8 (Version None)
Quarter: 2006Q2

REPORT INFORMATION
  Report Type: 
  Country: None (occurrence: None)
  Receive Date: 20060501
  Receipt Date: 20060418
  Transmission Date: 20061013
  Serious: Yes (Hospitalization)
  Sender: FDA-Public Use
  Company Number: US-AVENTIS-200613694US

PATIENT
  Sex: Female

DRUGS (3)
  1. KETEK [Suspect]
     Dosage: DOSE: UNKNOWN
  2. TRACLEER [Suspect]
     Indication: PULMONARY HYPERTENSION
     Dates: start: 20050101
  3. TRACLEER [Suspect]

REACTIONS (4)
  - HEPATOCELLULAR DAMAGE [None]
  - HOSPITALISATION [None]
  - LIVER FUNCTION TEST ABNORMAL [None]
  - LUNG DISORDER [None]
